FAERS Safety Report 24663581 (Version 1)
Quarter: 2024Q4

REPORT INFORMATION
  Report Type: Spontaneous
  Country: ES (occurrence: ES)
  Receive Date: 20241126
  Receipt Date: 20241126
  Transmission Date: 20250115
  Serious: Yes (Other)
  Sender: AMGEN
  Company Number: ES-ROCHE-10000127702

PATIENT
  Age: 59 Year
  Sex: Male
  Weight: 78.9 kg

DRUGS (14)
  1. BEVACIZUMAB [Suspect]
     Active Substance: BEVACIZUMAB
     Indication: Hepatocellular carcinoma
     Dosage: 1155 MILLIGRAM, Q3WK (DOSE LAST STUDY DRUG ADMIN PRIOR AE IS 1200 MG)
     Route: 040
     Dates: start: 20240229
  2. ATEZOLIZUMAB [Suspect]
     Active Substance: ATEZOLIZUMAB
     Indication: Hepatocellular carcinoma
     Dosage: 1200 MILLIGRAM, Q3WK (DOSE LAST STUDY DRUG ADMIN PRIOR AE IS 1200 MG)
     Route: 040
     Dates: start: 20240229
  3. CARVEDILOL [Concomitant]
     Active Substance: CARVEDILOL
     Indication: Hypertension
     Dosage: 6.25 MILLIGRAM (0.5 DAY)
     Route: 048
  4. OMEPRAZOLE [Concomitant]
     Active Substance: OMEPRAZOLE
     Indication: Hypertension
     Dosage: 20 MILLIGRAM (GIVEN FOR PROPHYLAXIS IS YES) (0.5 DAY)
     Route: 048
  5. METFORMIN HYDROCHLORIDE [Concomitant]
     Active Substance: METFORMIN HYDROCHLORIDE
     Indication: Type 2 diabetes mellitus
     Dosage: 2000 MILLIGRAM (0.5 DAY)
     Route: 048
  6. VILDAGLIPTIN [Concomitant]
     Active Substance: VILDAGLIPTIN
     Indication: Type 2 diabetes mellitus
     Dosage: 100 MILLIGRAM (0.5 DAY)
     Route: 048
  7. ASPIRIN [Concomitant]
     Active Substance: ASPIRIN
     Indication: Product used for unknown indication
     Dosage: 100 MILLIGRAM, QD (GIVEN FOR PROPHYLAXIS IS YES)
     Route: 048
  8. AMLODIPINE BESYLATE [Concomitant]
     Active Substance: AMLODIPINE BESYLATE
     Indication: Prophylaxis
     Dosage: 5 MILLIGRAM, QD (GIVEN FOR PROPHYLAXIS IS YES)
     Route: 048
  9. DIOSMIN [Concomitant]
     Active Substance: DIOSMIN
     Indication: Product used for unknown indication
     Dosage: 500 MILLIGRAM (0.5 DAY)
     Route: 048
  10. HESPERIDIN [Concomitant]
     Active Substance: HESPERIDIN
     Dosage: 500 MILLIGRAM (0.5 DAY)
     Route: 048
  11. RIFAXIMIN [Concomitant]
     Active Substance: RIFAXIMIN
     Indication: Hepatic failure
     Dosage: 200 MILLIGRAM (0.5 DAY)
     Route: 048
  12. SPIRONOLACTONE [Concomitant]
     Active Substance: SPIRONOLACTONE
     Indication: Hepatic failure
     Dosage: 100 MILLIGRAM, QD
     Route: 048
  13. FUROSEMIDE [Concomitant]
     Active Substance: FUROSEMIDE
     Indication: Hepatic failure
     Dosage: 20 MILLIGRAM, QD
     Route: 048
  14. LACTULOSE [Concomitant]
     Active Substance: LACTULOSE
     Indication: Hepatic failure
     Dosage: 666 MILLIGRAM, (0.5 DAY) GIVEN FOR PROPHYLAXIS IS YES
     Route: 048

REACTIONS (2)
  - Hepatic failure [Recovering/Resolving]
  - Off label use [Unknown]

NARRATIVE: CASE EVENT DATE: 20241105
